FAERS Safety Report 8355259-5 (Version None)
Quarter: 2012Q2

REPORT INFORMATION
  Report Type: 
  Country: None (occurrence: None)
  Receive Date: 20120511
  Receipt Date: 20120507
  Transmission Date: 20120825
  Serious: Yes (Hospitalization, Other)
  Sender: FDA-Public Use
  Company Number: US-ACTELION-A-NJ2011-51455

PATIENT

DRUGS (4)
  1. TRACLEER [Suspect]
     Dosage: UNK
     Route: 048
     Dates: start: 20111209
  2. COUMADIN [Concomitant]
  3. TRACLEER [Suspect]
     Indication: PULMONARY ARTERIAL HYPERTENSION
     Dosage: 125 MG, UNK
     Route: 048
     Dates: end: 20120201
  4. TRACLEER [Suspect]
     Dosage: 62.5 MG, UNK
     Route: 048
     Dates: start: 20120201

REACTIONS (6)
  - GASTROINTESTINAL HAEMORRHAGE [None]
  - DISEASE PROGRESSION [None]
  - OEDEMA PERIPHERAL [None]
  - METASTASES TO LIVER [None]
  - FLUID RETENTION [None]
  - WEIGHT INCREASED [None]
